FAERS Safety Report 9414176 (Version 4)
Quarter: 2013Q4

REPORT INFORMATION
  Report Type: Spontaneous
  Country: US (occurrence: US)
  Receive Date: 20130723
  Receipt Date: 20131017
  Transmission Date: 20140711
  Serious: Yes (Hospitalization, Other)
  Sender: FDA-Public Use
  Company Number: US-009507513-1307USA009872

PATIENT
  Age: 19 Year
  Sex: Female
  Weight: 107.94 kg

DRUGS (6)
  1. NUVARING [Suspect]
     Indication: CONTRACEPTION
     Dosage: ONE RING / THREE WEEKS
     Route: 067
     Dates: start: 200906, end: 20130525
  2. ESTROGENS (UNSPECIFIED) [Concomitant]
     Indication: MENSTRUATION IRREGULAR
     Dosage: UNK
     Route: 048
     Dates: end: 201305
  3. CITALOPRAM [Concomitant]
     Dosage: 40 MG, QD
     Route: 048
  4. SYNTHROID [Concomitant]
     Indication: HYPOTHYROIDISM
     Dosage: 50 MICROGRAM, QD
     Route: 048
  5. PREVACID [Concomitant]
     Dosage: 20 MG, QD
     Route: 048
  6. ZYRTEC [Concomitant]
     Dosage: 10 MG, QD
     Route: 048

REACTIONS (5)
  - Knee operation [Recovered/Resolved]
  - Pulmonary embolism [Recovered/Resolved]
  - Deep vein thrombosis [Recovered/Resolved]
  - Meniscus removal [Recovered/Resolved]
  - Debridement [Recovered/Resolved]
